FAERS Safety Report 6190359-X (Version None)
Quarter: 2009Q2

REPORT INFORMATION
  Report Type: 
  Country: None (occurrence: None)
  Receive Date: 20090514
  Receipt Date: 20090506
  Transmission Date: 20091009
  Serious: Yes (Other)
  Sender: FDA-Public Use
  Company Number: A0783954B

PATIENT
  Sex: Male
  Weight: 1 kg

DRUGS (3)
  1. COMBIVIR [Suspect]
     Indication: HIV INFECTION
     Dosage: 2U PER DAY
     Dates: start: 20090107
  2. RETROVIR [Suspect]
     Indication: HIV INFECTION
     Dates: start: 20090404, end: 20090405
  3. KALETRA [Concomitant]
     Indication: HIV INFECTION
     Dosage: 4U PER DAY
     Dates: start: 20090107

REACTIONS (2)
  - DRUG EXPOSURE DURING PREGNANCY [None]
  - PREMATURE BABY [None]
